FAERS Safety Report 7458501-8 (Version None)
Quarter: 2011Q2

REPORT INFORMATION
  Report Type: 
  Country: None (occurrence: None)
  Receive Date: 20110504
  Receipt Date: 20110501
  Transmission Date: 20111010
  Serious: No
  Sender: FDA-Public Use
  Company Number: US-TEVA-279530USA

PATIENT
  Sex: Female
  Weight: 49.94 kg

DRUGS (3)
  1. PLAN B ONE-STEP [Suspect]
     Indication: POST COITAL CONTRACEPTION
     Dosage: 1.5 MILLIGRAM;
     Route: 048
     Dates: start: 20110424, end: 20110424
  2. HYDROXYZINE [Concomitant]
     Indication: CYSTITIS NONINFECTIVE
     Dosage: 25 MILLIGRAM;
  3. ACYCLOVIR [Concomitant]
     Indication: HERPES VIRUS INFECTION
     Dosage: 800 MILLIGRAM;

REACTIONS (2)
  - PELVIC PAIN [None]
  - VAGINAL DISCHARGE [None]
